FAERS Safety Report 6014818-5 (Version None)
Quarter: 2008Q4

REPORT INFORMATION
  Report Type: 
  Country: None (occurrence: None)
  Receive Date: 20081219
  Receipt Date: 20081209
  Transmission Date: 20090506
  Serious: Yes (Death, Hospitalization)
  Sender: FDA-Public Use
  Company Number: FR-PFIZER INC-2008099595

PATIENT

DRUGS (1)
  1. SUNITINIB MALATE [Suspect]
     Indication: BREAST CANCER
     Dosage: 37.5 MG, UNK
     Route: 048
     Dates: start: 20081107, end: 20081118

REACTIONS (3)
  - DEATH [None]
  - GENERAL PHYSICAL HEALTH DETERIORATION [None]
  - PNEUMOPERITONEUM [None]
